FAERS Safety Report 11846095 (Version 1)
Quarter: 2015Q4

REPORT INFORMATION
  Report Type: Other
  Country: US (occurrence: US)
  Receive Date: 20151217
  Receipt Date: 20151217
  Transmission Date: 20160305
  Serious: Yes (Hospitalization)
  Sender: FDA-Public Use
  Company Number: US-DEP_13194_2015

PATIENT
  Age: 19 Month
  Sex: Female

DRUGS (1)
  1. FENTANYL. [Suspect]
     Active Substance: FENTANYL
     Indication: PRODUCT USED FOR UNKNOWN INDICATION
     Dosage: 25 MCG/H
     Route: 062

REACTIONS (5)
  - Skin discolouration [Recovered/Resolved]
  - Accidental exposure to product by child [Recovered/Resolved]
  - Toxic leukoencephalopathy [Recovered/Resolved]
  - Hypothermia [Recovered/Resolved]
  - Overdose [Recovered/Resolved]
